FAERS Safety Report 24958977 (Version 1)
Quarter: 2025Q1

REPORT INFORMATION
  Report Type: Spontaneous
  Country: US (occurrence: US)
  Receive Date: 20250212
  Receipt Date: 20250212
  Transmission Date: 20250408
  Serious: No
  Sender: BIONPHARMA INC.
  Company Number: US-Bion-014710

PATIENT
  Age: 48 Year
  Sex: Female
  Weight: 83.91 kg

DRUGS (1)
  1. IBUPROFEN [Suspect]
     Active Substance: IBUPROFEN
     Indication: Arthritis

REACTIONS (2)
  - Poor quality product administered [Unknown]
  - Dyspepsia [Recovered/Resolved]
